FAERS Safety Report 19820294 (Version 3)
Quarter: 2021Q4

REPORT INFORMATION
  Report Type: Spontaneous
  Country: US (occurrence: US)
  Receive Date: 20210913
  Receipt Date: 20211116
  Transmission Date: 20220303
  Serious: Yes (Other)
  Sender: FDA-Public Use
  Company Number: US-PROCTER_AND_GAMBLE-GS21082230

PATIENT
  Age: 61 Year
  Sex: Female
  Weight: 87.528 kg

DRUGS (2)
  1. CREST 3D WHITE WHITENING THERAPY DEEP CLEAN CHARCOAL [Suspect]
     Active Substance: SODIUM FLUORIDE
     Dosage: USED VERY LITTLE, A DOT, PEA SIZE AMOUNT ONE TIME ONLY.
     Route: 002
     Dates: start: 20210902, end: 20210902
  2. UNSPECIFIED INGREDIENT [Concomitant]
     Active Substance: UNSPECIFIED INGREDIENT

REACTIONS (7)
  - Hypersensitivity [Recovered/Resolved]
  - Swollen tongue [Recovered/Resolved]
  - Swelling face [Recovered/Resolved]
  - Documented hypersensitivity to administered product [Unknown]
  - Blood pressure systolic increased [Unknown]
  - Blood pressure diastolic increased [Unknown]
  - Respiratory rate increased [Unknown]

NARRATIVE: CASE EVENT DATE: 20210902
